FAERS Safety Report 5918549-9 (Version None)
Quarter: 2008Q4

REPORT INFORMATION
  Report Type: 
  Country: None (occurrence: None)
  Receive Date: 20081014
  Receipt Date: 20081014
  Transmission Date: 20090506
  Serious: Yes (Hospitalization)
  Sender: FDA-Public Use
  Company Number: None

PATIENT
  Age: 17 Year
  Sex: Female
  Weight: 63.5036 kg

DRUGS (1)
  1. DOXYCYCLINE [Suspect]
     Indication: LYME DISEASE
     Dosage: 1 CAPSULE 2 TIMES A DAY PO
     Route: 048
     Dates: start: 20080913, end: 20080927

REACTIONS (1)
  - DRUG HYPERSENSITIVITY [None]
